FAERS Safety Report 18263798 (Version 1)
Quarter: 2020Q3

REPORT INFORMATION
  Report Type: Spontaneous
  Country: HU (occurrence: HU)
  Receive Date: 20200914
  Receipt Date: 20200914
  Transmission Date: 20201103
  Serious: Yes (Life-Threatening)
  Sender: FDA-Public Use
  Company Number: HU-PFIZER INC-2020351200

PATIENT
  Sex: Male

DRUGS (2)
  1. RIVOTRIL [Suspect]
     Active Substance: CLONAZEPAM
  2. XANAX [Suspect]
     Active Substance: ALPRAZOLAM

REACTIONS (3)
  - Toxicity to various agents [Unknown]
  - Accidental overdose [Unknown]
  - Drug abuse [Unknown]
